FAERS Safety Report 6646048-8 (Version None)
Quarter: 2010Q1

REPORT INFORMATION
  Report Type: 
  Country: None (occurrence: None)
  Receive Date: 20100318
  Receipt Date: 20100304
  Transmission Date: 20100710
  Serious: Yes (Death, Hospitalization, Other)
  Sender: FDA-Public Use
  Company Number: A-US2010-34321

PATIENT
  Age: 39 Year
  Sex: Female
  Weight: 45.4 kg

DRUGS (27)
  1. TRACLEER [Suspect]
     Indication: PULMONARY ARTERIAL HYPERTENSION
     Dosage: 125 MG, BID, ORAL; 62.5 MG, BID, ORAL
     Route: 048
     Dates: start: 20030701, end: 20030101
  2. TRACLEER [Suspect]
     Indication: PULMONARY ARTERIAL HYPERTENSION
     Dosage: 125 MG, BID, ORAL; 62.5 MG, BID, ORAL
     Route: 048
     Dates: start: 20030701, end: 20070104
  3. VENTAVIS [Concomitant]
  4. BETA BLOCKING AGENTS [Concomitant]
  5. CORTICOSTEROIDS [Concomitant]
  6. DIURETICS [Concomitant]
  7. LEXAPRO [Concomitant]
  8. FIBERCON (POLYCARBOPHIL CALCIUM) [Concomitant]
  9. FOLIC ACID [Concomitant]
  10. OSCAL (VITAMIN D NOS) [Concomitant]
  11. IRON (IRON) [Concomitant]
  12. VALCYTE [Concomitant]
  13. PROGRAF [Concomitant]
  14. NEXIUM [Concomitant]
  15. BONIVA [Concomitant]
  16. ARANESP [Concomitant]
  17. MAGNESIUM OXIDE (MAGNESIUM OXIDE) [Concomitant]
  18. AMBIEN [Concomitant]
  19. ZOFRAN [Concomitant]
  20. ZYRTEC (CETIRIZINE HYDROCHLORIDE, PSEUDOEPHEDRINE HYDROCHLORIDE) [Concomitant]
  21. POTASSIUM CHLORIDE [Concomitant]
  22. MULTIVITAMIN [Concomitant]
  23. OXYGEN (OXYGEN) [Concomitant]
  24. TRAZODONE HCL [Concomitant]
  25. METOPROLOL TARTRATE [Concomitant]
  26. KLONOPIN [Concomitant]
  27. PREDNISONE TAB [Concomitant]

REACTIONS (11)
  - ABDOMINAL DISTENSION [None]
  - ATRIAL TACHYCARDIA [None]
  - DIALYSIS [None]
  - HEART AND LUNG TRANSPLANT [None]
  - HEPATIC ATROPHY [None]
  - HEPATIC CIRRHOSIS [None]
  - HEPATIC FIBROSIS [None]
  - PORTAL HYPERTENSION [None]
  - RENAL FAILURE [None]
  - RESPIRATORY FAILURE [None]
  - RIGHT VENTRICULAR FAILURE [None]
